FAERS Safety Report 7939147-1 (Version None)
Quarter: 2011Q4

REPORT INFORMATION
  Report Type: 
  Country: None (occurrence: None)
  Receive Date: 20111124
  Receipt Date: 20111119
  Transmission Date: 20120403
  Serious: Yes (Death, Other)
  Sender: FDA-Public Use
  Company Number: CN-ROCHE-1014935

PATIENT
  Age: 39 Year
  Sex: Male

DRUGS (3)
  1. MYCOPHENOLATE MOFETIL (CELLCEPT) [Suspect]
     Indication: RENAL TRANSPLANT
  2. CYCLOSPORINE [Concomitant]
     Indication: RENAL TRANSPLANT
  3. PREDNISONE TAB [Concomitant]
     Indication: RENAL TRANSPLANT

REACTIONS (3)
  - HEPATIC CIRRHOSIS [None]
  - HEPATITIS B DNA ASSAY POSITIVE [None]
  - HEPATIC FUNCTION ABNORMAL [None]
